FAERS Safety Report 17270018 (Version 1)
Quarter: 2020Q1

REPORT INFORMATION
  Report Type: Spontaneous
  Country: FR (occurrence: FR)
  Receive Date: 20200114
  Receipt Date: 20200114
  Transmission Date: 20200409
  Serious: Yes (Hospitalization)
  Sender: FDA-Public Use
  Company Number: FR-MYLANLABS-2020M1003777

PATIENT
  Age: 48 Year
  Sex: Male
  Weight: 86 kg

DRUGS (4)
  1. ZOPICLONE [Suspect]
     Active Substance: ZOPICLONE
     Indication: PRODUCT USED FOR UNKNOWN INDICATION
     Dosage: NON PRECISE
     Route: 048
     Dates: start: 20191002, end: 20191002
  2. ESCITALOPRAM [Suspect]
     Active Substance: ESCITALOPRAM OXALATE
     Indication: PRODUCT USED FOR UNKNOWN INDICATION
     Dosage: NON PRECISE
     Route: 048
     Dates: start: 20191002, end: 20191002
  3. ENALAPRIL [Suspect]
     Active Substance: ENALAPRIL
     Indication: PRODUCT USED FOR UNKNOWN INDICATION
     Dosage: NON PRECIE
     Route: 048
     Dates: start: 20191002, end: 20191002
  4. MIRTAZAPINE. [Suspect]
     Active Substance: MIRTAZAPINE
     Indication: PRODUCT USED FOR UNKNOWN INDICATION
     Dosage: NON PRECISE
     Route: 048
     Dates: start: 20191002, end: 20191002

REACTIONS (5)
  - Coma [Recovered/Resolved]
  - Sedation [Recovered/Resolved]
  - Toxicity to various agents [Unknown]
  - Pneumonia aspiration [Recovered/Resolved]
  - Hypotension [Recovered/Resolved]

NARRATIVE: CASE EVENT DATE: 20191002
